FAERS Safety Report 17392039 (Version 1)
Quarter: 2020Q1

REPORT INFORMATION
  Report Type: Spontaneous
  Country: AL (occurrence: AL)
  Receive Date: 20200207
  Receipt Date: 20200207
  Transmission Date: 20200409
  Serious: Yes (Hospitalization, Other)
  Sender: FDA-Public Use
  Company Number: AL-SA-2020SA030525

PATIENT
  Age: 68 Year
  Sex: Female

DRUGS (3)
  1. CLOPIDOGREL BISULFATE. [Suspect]
     Active Substance: CLOPIDOGREL BISULFATE
     Indication: ACUTE CORONARY SYNDROME
  2. ENOXAPARIN SODIUM. [Suspect]
     Active Substance: ENOXAPARIN SODIUM
     Indication: ACUTE CORONARY SYNDROME
  3. ACETYLSALICYLIC ACID [Suspect]
     Active Substance: ASPIRIN
     Indication: ACUTE CORONARY SYNDROME

REACTIONS (10)
  - Aortic dilatation [Recovering/Resolving]
  - Haemoglobin decreased [Recovering/Resolving]
  - Cardiac aneurysm [Recovering/Resolving]
  - Haematoma [Recovering/Resolving]
  - Ischaemic stroke [Recovering/Resolving]
  - Hypokinesia [Recovering/Resolving]
  - Left ventricular hypertrophy [Recovering/Resolving]
  - Atrial fibrillation [Recovering/Resolving]
  - Myocardial infarction [Recovering/Resolving]
  - Pericardial effusion [Recovering/Resolving]
